FAERS Safety Report 7247444-0 (Version None)
Quarter: 2011Q1

REPORT INFORMATION
  Report Type: 
  Country: None (occurrence: None)
  Receive Date: 20110127
  Receipt Date: 20110120
  Transmission Date: 20110831
  Serious: Yes (Other)
  Sender: FDA-Public Use
  Company Number: PHHY2011JP04986

PATIENT
  Sex: Male

DRUGS (2)
  1. ZADITEN [Suspect]
     Indication: EPISTAXIS
     Route: 048
  2. MUCOSIL-10 [Concomitant]
     Route: 048

REACTIONS (2)
  - COAGULATION FACTOR VIII LEVEL DECREASED [None]
  - COAGULATION FACTOR IX LEVEL DECREASED [None]
